FAERS Safety Report 7207444-3 (Version None)
Quarter: 2011Q1

REPORT INFORMATION
  Report Type: 
  Country: None (occurrence: None)
  Receive Date: 20110103
  Receipt Date: 20101229
  Transmission Date: 20110831
  Serious: Yes (Other)
  Sender: FDA-Public Use
  Company Number: GXKR2010DE14271

PATIENT
  Sex: Female
  Weight: 65 kg

DRUGS (1)
  1. SIMVAHEXAL [Suspect]
     Dosage: 20 MG, QHS
     Route: 048
     Dates: start: 20101215, end: 20101217

REACTIONS (6)
  - PAIN IN EXTREMITY [None]
  - PANIC ATTACK [None]
  - ANXIETY [None]
  - ANGINA PECTORIS [None]
  - CHEST PAIN [None]
  - TREMOR [None]
